FAERS Safety Report 4842201-4 (Version None)
Quarter: 2005Q4

REPORT INFORMATION
  Report Type: 
  Country: None (occurrence: None)
  Receive Date: 20051129
  Receipt Date: 20051115
  Transmission Date: 20060501
  Serious: Yes (Hospitalization, Other)
  Sender: FDA-Public Use
  Company Number: FR_051007277

PATIENT
  Age: 79 Year
  Sex: Female
  Weight: 47 kg

DRUGS (3)
  1. FORTEO [Suspect]
     Indication: OSTEOPOROSIS
     Dosage: SEE IMAGE
     Route: 058
     Dates: start: 20050401, end: 20050831
  2. FORTEO [Suspect]
     Indication: OSTEOPOROSIS
     Dosage: SEE IMAGE
     Route: 058
     Dates: start: 20051111
  3. FORTEO [Concomitant]

REACTIONS (2)
  - CARDIAC FAILURE [None]
  - MITRAL VALVE INCOMPETENCE [None]
